FAERS Safety Report 25733264 (Version 1)
Quarter: 2025Q3

REPORT INFORMATION
  Report Type: Spontaneous
  Country: US (occurrence: US)
  Receive Date: 20250828
  Receipt Date: 20250828
  Transmission Date: 20251020
  Serious: Yes (Death)
  Sender: SANDOZ
  Company Number: US-002147023-NVSC2024US189394

PATIENT
  Age: 57 Year
  Sex: Male
  Weight: 38.6 kg

DRUGS (10)
  1. AZITHROMYCIN [Suspect]
     Active Substance: AZITHROMYCIN
     Indication: Mycobacterium avium complex infection
     Dosage: 780 MG, QD
     Route: 048
     Dates: start: 20220113
  2. AZITHROMYCIN [Suspect]
     Active Substance: AZITHROMYCIN
     Dosage: 780 MG, QD
     Route: 048
     Dates: start: 20240816
  3. LAMPRENE [Suspect]
     Active Substance: CLOFAZIMINE
     Indication: Mycobacterium avium complex infection
     Dosage: 100 MG, QD
     Route: 048
     Dates: start: 20230617
  4. LAMPRENE [Suspect]
     Active Substance: CLOFAZIMINE
     Dosage: 100 MG, QD
     Route: 048
     Dates: start: 20240816
  5. AMIKACIN [Concomitant]
     Active Substance: AMIKACIN
     Indication: Mycobacterium avium complex infection
     Route: 065
     Dates: start: 20231116
  6. AMIKACIN [Concomitant]
     Active Substance: AMIKACIN
     Route: 065
     Dates: start: 20240816
  7. CEFEPIME [Concomitant]
     Active Substance: CEFEPIME HYDROCHLORIDE
     Indication: Product used for unknown indication
     Dosage: 1000 MG, Q12H
     Route: 065
     Dates: start: 20240812, end: 20240818
  8. ETHAMBUTOL [Concomitant]
     Active Substance: ETHAMBUTOL HYDROCHLORIDE
     Indication: Mycobacterium avium complex infection
     Dosage: 250 MG, QD
     Route: 048
     Dates: start: 20220113
  9. ETHAMBUTOL [Concomitant]
     Active Substance: ETHAMBUTOL HYDROCHLORIDE
     Dosage: 250 MG, QD
     Route: 048
     Dates: start: 20240816
  10. VANCOMYCIN [Concomitant]
     Active Substance: VANCOMYCIN
     Indication: Product used for unknown indication
     Dosage: 750 MG, Q12H
     Route: 065
     Dates: start: 20240812, end: 20240816

REACTIONS (8)
  - Respiratory failure [Fatal]
  - Emphysema [Fatal]
  - Pneumonia bacterial [Fatal]
  - Hypoxia [Fatal]
  - Pyrexia [Fatal]
  - Leukocytosis [Fatal]
  - C-reactive protein abnormal [Fatal]
  - Pathogen resistance [Unknown]

NARRATIVE: CASE EVENT DATE: 20240812
